FAERS Safety Report 7460526-3 (Version None)
Quarter: 2011Q2

REPORT INFORMATION
  Report Type: 
  Country: None (occurrence: None)
  Receive Date: 20110505
  Receipt Date: 20110427
  Transmission Date: 20111010
  Serious: Yes (Other)
  Sender: FDA-Public Use
  Company Number: PHHY2011FR36259

PATIENT
  Sex: Female

DRUGS (7)
  1. LODOZ [Suspect]
  2. COAPROVEL [Suspect]
     Indication: HYPERTENSION
     Dosage: 1 DF, UNK
  3. LOXEN LP [Suspect]
     Indication: HYPERTENSION
     Dosage: 50 MG, UNK
     Route: 048
  4. TEMERIT [Suspect]
  5. ALLOPURINOL [Suspect]
     Dosage: UNK
  6. MEDIATOR [Suspect]
     Dosage: 150 MG, UNK
     Dates: start: 20080117, end: 20091001
  7. PRAZOSIN HCL [Suspect]

REACTIONS (3)
  - HEART VALVE INCOMPETENCE [None]
  - CARDIAC VALVE DISEASE [None]
  - DYSPNOEA [None]
